FAERS Safety Report 10096540 (Version 1)
Quarter: 2014Q2

REPORT INFORMATION
  Report Type: Spontaneous
  Country: JP (occurrence: JP)
  Receive Date: 20140422
  Receipt Date: 20140422
  Transmission Date: 20141212
  Serious: Yes (Other)
  Sender: FDA-Public Use
  Company Number: JP-BRISTOL-MYERS SQUIBB COMPANY-20653846

PATIENT
  Age: 45 Year
  Sex: Female

DRUGS (1)
  1. KENACORT INJ [Suspect]
     Route: 023

REACTIONS (2)
  - Breast atrophy [Not Recovered/Not Resolved]
  - Capillary disorder [Not Recovered/Not Resolved]
